FAERS Safety Report 18097498 (Version 1)
Quarter: 2020Q3

REPORT INFORMATION
  Report Type: Other
  Country: CA (occurrence: CA)
  Receive Date: 20200730
  Receipt Date: 20200730
  Transmission Date: 20201103
  Serious: Yes (Other)
  Sender: FDA-Public Use
  Company Number: CA-ROCHE-2649776

PATIENT
  Sex: Female

DRUGS (22)
  1. ACTEMRA [Suspect]
     Active Substance: TOCILIZUMAB
     Indication: RHEUMATOID ARTHRITIS
     Dosage: EVERY OTHER WEEK: ONGOING:YES
     Route: 058
  2. BIRTH CONTROL (UNK INGREDIENTS) [Concomitant]
  3. HYDROCHLOROTHIAZIDE. [Concomitant]
     Active Substance: HYDROCHLOROTHIAZIDE
  4. OMEGA?3 ACIDS [Concomitant]
     Active Substance: OMEGA-3 FATTY ACIDS
  5. TURMERIC [Concomitant]
     Active Substance: HERBALS\TURMERIC
  6. CIPRINOL [Concomitant]
     Active Substance: CIPROFLOXACIN
  7. RABEPRAZOLE [Concomitant]
     Active Substance: RABEPRAZOLE
  8. DOXYCYCLINE. [Concomitant]
     Active Substance: DOXYCYCLINE
  9. ABILIFY [Concomitant]
     Active Substance: ARIPIPRAZOLE
  10. TRAMADOL. [Concomitant]
     Active Substance: TRAMADOL
  11. B100 [Concomitant]
     Active Substance: MINERALS\VITAMINS
  12. BLEXTEN [Concomitant]
     Active Substance: BILASTINE
  13. CALCIUM [Concomitant]
     Active Substance: CALCIUM
  14. DEXAGENTA [Concomitant]
  15. VITAMIN D [Concomitant]
     Active Substance: VITAMIN D NOS
  16. ATIVAN [Concomitant]
     Active Substance: LORAZEPAM
  17. FOLIC ACID. [Concomitant]
     Active Substance: FOLIC ACID
  18. METHOTREXATE. [Concomitant]
     Active Substance: METHOTREXATE
  19. NAPROXEN. [Concomitant]
     Active Substance: NAPROXEN
  20. PREDNISONE. [Concomitant]
     Active Substance: PREDNISONE
  21. SYNTHROID [Concomitant]
     Active Substance: LEVOTHYROXINE SODIUM
  22. XELJANZ [Concomitant]
     Active Substance: TOFACITINIB CITRATE

REACTIONS (1)
  - Arthritis bacterial [Unknown]
